FAERS Safety Report 20675386 (Version 1)
Quarter: 2022Q2

REPORT INFORMATION
  Report Type: Spontaneous
  Country: US (occurrence: None)
  Receive Date: 20220404
  Receipt Date: 20220404
  Transmission Date: 20220721
  Serious: Yes (Death)
  Sender: FDA-Public Use
  Company Number: None

PATIENT
  Sex: Male

DRUGS (17)
  1. SANDIMMUNE [Suspect]
     Active Substance: CYCLOSPORINE
     Indication: Chronic kidney disease
     Dosage: TAKE 3 CAPSULES (75 MG) BY MOUTH IN THE MORNING AND 2 CAPSULES (50 MG) IN THE EVENING?
     Route: 048
     Dates: start: 20170606
  2. AMIODARONE TAB 400MG [Concomitant]
  3. AMLOD/VALSAR  TAB 10-320MG [Concomitant]
  4. ASPIRIN [Concomitant]
     Active Substance: ASPIRIN
  5. BLACK CHERRY LIQ CONCENTR [Concomitant]
  6. CENTRUM TAB SILVER [Concomitant]
  7. FLOMAX [Concomitant]
     Active Substance: TAMSULOSIN HYDROCHLORIDE
  8. MAG OXIDE TAB 400MG [Concomitant]
  9. METRONIDAZOL TAB 250MG [Concomitant]
  10. OSCAL 500/ TAB 200 D-3 [Concomitant]
  11. PLAQUENIL [Concomitant]
     Active Substance: HYDROXYCHLOROQUINE SULFATE
  12. PRAVACHOL TAB 20MG [Concomitant]
  13. PREDNISONE [Concomitant]
     Active Substance: PREDNISONE
  14. PROTONIX INJ 40MG [Concomitant]
  15. SULFASALAZIN TAB 500MG [Concomitant]
  16. SYNTHROID TAB 50MCG [Concomitant]
  17. ULORIC TAB 40MG [Concomitant]

REACTIONS (1)
  - Death [None]
